FAERS Safety Report 6397216-4 (Version None)
Quarter: 2009Q4

REPORT INFORMATION
  Report Type: 
  Country: None (occurrence: None)
  Receive Date: 20091012
  Receipt Date: 20091007
  Transmission Date: 20100525
  Serious: Yes (Hospitalization)
  Sender: FDA-Public Use
  Company Number: JP-BAYER-200710074BYL

PATIENT
  Age: 70 Year
  Sex: Male
  Weight: 63 kg

DRUGS (5)
  1. PLACEBO [Suspect]
     Indication: HEPATIC NEOPLASM MALIGNANT
     Dosage: TOTAL DAILY DOSE: 800 MG  UNIT DOSE: 200 MG
     Route: 048
     Dates: start: 20061228, end: 20070125
  2. PLACEBO [Suspect]
     Dosage: TOTAL DAILY DOSE: 400 MG  UNIT DOSE: 200 MG
     Route: 048
     Dates: start: 20070208
  3. SOLDEM 3A [Concomitant]
     Indication: FLUID REPLACEMENT
     Route: 042
     Dates: start: 20070125, end: 20070129
  4. NEO-MINOPHAGEN C [Concomitant]
     Indication: HEPATITIS
     Dosage: UNIT DOSE: 20 ML
     Route: 042
  5. URSO 250 [Concomitant]
     Indication: HEPATITIS
     Dosage: TOTAL DAILY DOSE: 300 MG  UNIT DOSE: 100 MG
     Route: 048

REACTIONS (1)
  - LOSS OF CONSCIOUSNESS [None]
